FAERS Safety Report 10515602 (Version 2)
Quarter: 2014Q4

REPORT INFORMATION
  Report Type: Spontaneous
  Country: US (occurrence: None)
  Receive Date: 20141009
  Receipt Date: 20141029
  Transmission Date: 20150528
  Serious: Yes (Hospitalization)
  Sender: FDA-Public Use
  Company Number: 2014UCU075000306

PATIENT
  Age: 37 Year
  Sex: Female
  Weight: 63 kg

DRUGS (26)
  1. CIMZIA [Suspect]
     Active Substance: CERTOLIZUMAB PEGOL
     Indication: CROHN^S DISEASE
     Dates: start: 20090819
  2. OMEPRAZOLE. [Concomitant]
     Active Substance: OMEPRAZOLE
  3. CYCLOSPRORINE [Concomitant]
  4. AZATHIOPRINE. [Concomitant]
     Active Substance: AZATHIOPRINE
  5. DILTIAZEM HCL [Concomitant]
     Active Substance: DILTIAZEM HYDROCHLORIDE
  6. GABAPENTIN. [Concomitant]
     Active Substance: GABAPENTIN
  7. NYSTATIN. [Concomitant]
     Active Substance: NYSTATIN
  8. PREDNISONE. [Concomitant]
     Active Substance: PREDNISONE
  9. ALBUTEROL SULFATE. [Concomitant]
     Active Substance: ALBUTEROL SULFATE
  10. METRONIDAZOLE. [Concomitant]
     Active Substance: METRONIDAZOLE
  11. BUDESONIDE. [Concomitant]
     Active Substance: BUDESONIDE
  12. NORCO [Suspect]
     Active Substance: ACETAMINOPHEN\HYDROCODONE BITARTRATE
  13. MESALAMINE. [Concomitant]
     Active Substance: MESALAMINE
  14. PROGRAF [Concomitant]
     Active Substance: TACROLIMUS\TACROLIMUS ANHYDROUS
  15. CYMBALTA [Concomitant]
     Active Substance: DULOXETINE HYDROCHLORIDE
  16. PROMETHAZINE HYDROCHLORIDE. [Concomitant]
     Active Substance: PROMETHAZINE HYDROCHLORIDE
  17. RANITIDINE HCL [Concomitant]
     Active Substance: RANITIDINE HYDROCHLORIDE
  18. FLUCONAZOLE. [Concomitant]
     Active Substance: FLUCONAZOLE
  19. 6-MP [Concomitant]
     Active Substance: MERCAPTOPURINE
  20. SULFASALAZINE. [Concomitant]
     Active Substance: SULFASALAZINE
  21. INFLIXIMAB [Concomitant]
     Active Substance: INFLIXIMAB
  22. ADALIMUMAB [Concomitant]
     Active Substance: ADALIMUMAB
  23. MORPHINE [Suspect]
     Active Substance: MORPHINE
  24. LIDOCAINE. [Concomitant]
     Active Substance: LIDOCAINE
  25. CIPROFLOXACIN HYDROCHLORIDE. [Concomitant]
     Active Substance: CIPROFLOXACIN HYDROCHLORIDE
  26. METHOTREXATE [Concomitant]
     Active Substance: METHOTREXATE

REACTIONS (4)
  - Constipation [None]
  - Overdose [None]
  - Abdominal pain [None]
  - Lethargy [None]

NARRATIVE: CASE EVENT DATE: 20131126
